FAERS Safety Report 12378714 (Version 1)
Quarter: 2016Q2

REPORT INFORMATION
  Report Type: Spontaneous
  Country: US (occurrence: US)
  Receive Date: 20160517
  Receipt Date: 20160517
  Transmission Date: 20160815
  Serious: No
  Sender: FDA-Public Use
  Company Number: US-ASTRAZENECA-2016SE49824

PATIENT
  Age: 14427 Day
  Sex: Female
  Weight: 62.1 kg

DRUGS (13)
  1. SEROQUEL [Suspect]
     Active Substance: QUETIAPINE FUMARATE
     Indication: AFFECTIVE DISORDER
     Route: 048
  2. SEROQUEL [Suspect]
     Active Substance: QUETIAPINE FUMARATE
     Indication: INSOMNIA
     Route: 048
  3. SEROQUEL [Suspect]
     Active Substance: QUETIAPINE FUMARATE
     Indication: AFFECTIVE DISORDER
     Route: 048
     Dates: start: 20160309, end: 20160502
  4. SEROQUEL [Suspect]
     Active Substance: QUETIAPINE FUMARATE
     Indication: INSOMNIA
     Route: 048
     Dates: start: 20160309, end: 20160502
  5. SEROQUEL [Suspect]
     Active Substance: QUETIAPINE FUMARATE
     Indication: STRESS
     Route: 048
     Dates: start: 20160302, end: 20160308
  6. SEROQUEL [Suspect]
     Active Substance: QUETIAPINE FUMARATE
     Indication: HYPOACUSIS
     Route: 048
     Dates: start: 20160309, end: 20160502
  7. SEROQUEL [Suspect]
     Active Substance: QUETIAPINE FUMARATE
     Indication: HYPOACUSIS
     Route: 048
     Dates: start: 20160302, end: 20160308
  8. SEROQUEL [Suspect]
     Active Substance: QUETIAPINE FUMARATE
     Indication: HYPOACUSIS
     Route: 048
  9. SEROQUEL [Suspect]
     Active Substance: QUETIAPINE FUMARATE
     Indication: STRESS
     Route: 048
  10. SEROQUEL [Suspect]
     Active Substance: QUETIAPINE FUMARATE
     Indication: STRESS
     Route: 048
     Dates: start: 20160309, end: 20160502
  11. SEROQUEL [Suspect]
     Active Substance: QUETIAPINE FUMARATE
     Indication: INSOMNIA
     Route: 048
     Dates: start: 20160302, end: 20160308
  12. VISTARIL [Concomitant]
     Active Substance: HYDROXYZINE PAMOATE
     Indication: ANXIETY
     Route: 048
     Dates: start: 20160307
  13. SEROQUEL [Suspect]
     Active Substance: QUETIAPINE FUMARATE
     Indication: AFFECTIVE DISORDER
     Route: 048
     Dates: start: 20160302, end: 20160308

REACTIONS (7)
  - Therapeutic agent urine positive [Unknown]
  - Off label use [Unknown]
  - Weight increased [Unknown]
  - Somnolence [Unknown]
  - Intentional product misuse [Unknown]
  - Product use issue [Unknown]
  - Food craving [Unknown]

NARRATIVE: CASE EVENT DATE: 201604
